FAERS Safety Report 10064142 (Version 2)
Quarter: 2014Q2

REPORT INFORMATION
  Report Type: Spontaneous
  Country: ZA (occurrence: ZA)
  Receive Date: 20140408
  Receipt Date: 20140415
  Transmission Date: 20141212
  Serious: Yes (Death)
  Sender: FDA-Public Use
  Company Number: ZA-009507513-1404ZAF003725

PATIENT
  Age: 74 Year
  Sex: Female

DRUGS (12)
  1. CANCIDAS 50MG [Suspect]
     Indication: ANTIFUNGAL TREATMENT
     Dosage: 10
     Dates: start: 20131016
  2. CANCIDAS 50MG [Suspect]
     Dosage: 10
     Dates: start: 20131017
  3. SOLU-MEDROL [Concomitant]
     Dosage: 500 M
     Dates: start: 20131016
  4. ABILIFY [Concomitant]
     Dosage: UNK
     Route: 048
     Dates: start: 20131016
  5. ABILIFY [Concomitant]
     Dosage: UNK
     Route: 048
     Dates: start: 20131017
  6. LACSON [Concomitant]
     Dosage: UNK
     Dates: start: 20131016
  7. KONAKION [Concomitant]
     Dosage: MM
     Dates: start: 20131016
  8. NEXIAM [Concomitant]
     Dosage: I
     Route: 042
     Dates: start: 20131016
  9. THIAMINE HYDROCHLORIDE [Concomitant]
     Dosage: 10 M
  10. ROCEPHIN [Concomitant]
     Dosage: VUAK
     Dates: start: 20131016
  11. FUROSEMIDE-FRESE [Concomitant]
     Dosage: UNK
     Dates: start: 20131017
  12. PURICOS [Concomitant]
     Dosage: UNK
     Route: 048
     Dates: start: 20131017

REACTIONS (2)
  - Death [Fatal]
  - Mechanical ventilation [Unknown]
